FAERS Safety Report 14695244 (Version 14)
Quarter: 2019Q4

REPORT INFORMATION
  Report Type: Spontaneous
  Country: US (occurrence: US)
  Receive Date: 20180329
  Receipt Date: 20191203
  Transmission Date: 20200122
  Serious: Yes (Hospitalization)
  Sender: FDA-Public Use
  Company Number: US-ACTELION-A-NJ2018-169798

PATIENT
  Age: 58 Year
  Sex: Female
  Weight: 108.84 kg

DRUGS (18)
  1. OPSUMIT [Suspect]
     Active Substance: MACITENTAN
     Indication: PULMONARY ARTERIAL HYPERTENSION
     Dosage: 10 MG, QD
     Route: 048
  2. NORVASC [Concomitant]
     Active Substance: AMLODIPINE BESYLATE
  3. FLONASE [Concomitant]
     Active Substance: FLUTICASONE PROPIONATE
  4. ZAROXOLYN [Concomitant]
     Active Substance: METOLAZONE
  5. UPTRAVI [Suspect]
     Active Substance: SELEXIPAG
     Dosage: UNK
     Route: 048
     Dates: start: 20160806
  6. NEUROTIN [Concomitant]
     Active Substance: GABAPENTIN
  7. AMLODIPINE [Concomitant]
     Active Substance: AMLODIPINE BESYLATE
  8. NEXIUM [Concomitant]
     Active Substance: ESOMEPRAZOLE MAGNESIUM
  9. LASIX [Concomitant]
     Active Substance: FUROSEMIDE
  10. UPTRAVI [Suspect]
     Active Substance: SELEXIPAG
     Dosage: 1200 MCG, BID
     Route: 048
     Dates: start: 20160806
  11. LETAIRIS [Concomitant]
     Active Substance: AMBRISENTAN
  12. NORCO [Concomitant]
     Active Substance: ACETAMINOPHEN\HYDROCODONE BITARTRATE
  13. UPTRAVI [Suspect]
     Active Substance: SELEXIPAG
     Indication: PULMONARY ARTERIAL HYPERTENSION
     Dosage: 1400 MCG, BID
     Route: 048
  14. DIGOXIN. [Concomitant]
     Active Substance: DIGOXIN
  15. K-DUR [Concomitant]
     Active Substance: POTASSIUM CHLORIDE
  16. ADCIRCA [Concomitant]
     Active Substance: TADALAFIL
  17. LANOXIN [Concomitant]
     Active Substance: DIGOXIN
  18. ALDACTONE [Concomitant]
     Active Substance: SPIRONOLACTONE

REACTIONS (15)
  - Amnesia [Unknown]
  - Parotitis [Unknown]
  - Bronchitis [Unknown]
  - Dyspnoea [Recovered/Resolved]
  - Feeling abnormal [Unknown]
  - Swelling face [Unknown]
  - Pulmonary arterial hypertension [Recovered/Resolved]
  - Gastrooesophageal reflux disease [Unknown]
  - Pneumonia [Recovered/Resolved]
  - Malaise [Unknown]
  - Retching [Unknown]
  - Chronic obstructive pulmonary disease [Recovered/Resolved]
  - Nausea [Recovering/Resolving]
  - Urinary tract infection [Unknown]
  - Abdominal discomfort [Recovering/Resolving]

NARRATIVE: CASE EVENT DATE: 201803
